FAERS Safety Report 6305244-X (Version None)
Quarter: 2009Q3

REPORT INFORMATION
  Report Type: 
  Country: None (occurrence: None)
  Receive Date: 20090811
  Receipt Date: 20090729
  Transmission Date: 20100115
  Serious: Yes (Other)
  Sender: FDA-Public Use
  Company Number: PHHY2009GB26352

PATIENT
  Sex: Male
  Weight: 70.9 kg

DRUGS (5)
  1. CLOZARIL [Suspect]
     Indication: SCHIZOPHRENIA
     Dosage: UNK
     Dates: start: 19950615
  2. CLOZARIL [Suspect]
     Dosage: 550 MG DAILY
  3. FLUOXETINE [Concomitant]
     Indication: DEPRESSION
     Dosage: 30 MG
     Route: 048
  4. LORAZEPAM [Concomitant]
     Dosage: 4 MG
  5. HYOSCINE [Concomitant]
     Indication: SALIVARY HYPERSECRETION
     Dosage: 0.9 MG
     Route: 048

REACTIONS (5)
  - DEHYDRATION [None]
  - FATIGUE [None]
  - HEMIPARESIS [None]
  - LEARNING DISORDER [None]
  - SPEECH DISORDER [None]
